FAERS Safety Report 9045828 (Version 1)
Quarter: 2013Q1

REPORT INFORMATION
  Report Type: Report from Study
  Country: US (occurrence: US)
  Receive Date: 20130201
  Receipt Date: 20130201
  Transmission Date: 20140127
  Serious: No
  Sender: FDA-Public Use
  Company Number: US-ABBOTT-12P-163-1015753-00

PATIENT
  Age: 68 Year
  Sex: Male

DRUGS (25)
  1. HUMIRA [Suspect]
     Indication: COLITIS ULCERATIVE
     Dosage: WEEKLY
  2. LISINOPRIL [Concomitant]
     Indication: BLOOD PRESSURE
     Dosage: 20 MG DAILY
     Route: 048
  3. ADVAIR [Concomitant]
     Indication: ASTHMA
     Dosage: DISKS, 100/50 MG
     Route: 048
  4. METOPROLOL TARTRATE [Concomitant]
     Indication: ATRIAL FIBRILLATION
     Route: 048
  5. MUCINEX [Concomitant]
     Indication: HYPERSENSITIVITY
     Route: 048
  6. MUCINEX [Concomitant]
     Indication: RHINITIS
  7. OMEPRAZOLE [Concomitant]
     Indication: GASTROOESOPHAGEAL REFLUX DISEASE
     Route: 048
  8. OMEPRAZOLE [Concomitant]
     Indication: COLITIS ULCERATIVE
  9. PRADAXA [Concomitant]
     Indication: ATRIAL FIBRILLATION
     Route: 048
  10. PRADAXA [Concomitant]
     Indication: COAGULOPATHY
  11. TIKOSYN [Concomitant]
     Indication: ATRIAL FIBRILLATION
     Route: 048
  12. BABY ASPIRIN [Concomitant]
     Indication: ATRIAL FIBRILLATION
     Dosage: 81 MG DAILY
     Route: 048
  13. BABY ASPIRIN [Concomitant]
     Indication: COAGULOPATHY
  14. CLONAZEPAM [Concomitant]
     Indication: RESTLESS LEGS SYNDROME
     Dosage: AT BEDTIME
     Route: 048
  15. DIGOXIN [Concomitant]
     Indication: ATRIAL FIBRILLATION
     Dosage: 0.125 MG DAILY
     Route: 048
  16. RINECORT [Concomitant]
     Indication: HYPERSENSITIVITY
     Dosage: SPRAY, 32 MCG 2 PUFFS DAILY IN EACH NOSTRIL AT BEDTIME
     Route: 045
  17. RINECORT [Concomitant]
     Indication: RHINITIS
  18. SIMVASTATIN [Concomitant]
     Indication: BLOOD CHOLESTEROL
     Dosage: 20 MG DAILY
     Route: 048
  19. SINGULAIR [Concomitant]
     Indication: HYPERSENSITIVITY
     Dosage: 10 MG DAILY
     Route: 048
  20. SINGULAIR [Concomitant]
     Indication: RHINITIS
  21. TRAMADOL [Concomitant]
     Indication: PAIN
     Route: 048
  22. CPAP MACHINE [Concomitant]
     Indication: PRODUCT USED FOR UNKNOWN INDICATION
     Dosage: AT BEDTIME
  23. SEVERAL UNKNOWN CREAMS [Concomitant]
     Indication: PRODUCT USED FOR UNKNOWN INDICATION
  24. PREDNISONE [Concomitant]
     Indication: PRODUCT USED FOR UNKNOWN INDICATION
     Dosage: TAPERING DOSE FOR SIX DOSES
  25. CEFUROXIME [Concomitant]
     Route: 048

REACTIONS (7)
  - Haemoptysis [Not Recovered/Not Resolved]
  - Productive cough [Not Recovered/Not Resolved]
  - Pulmonary congestion [Not Recovered/Not Resolved]
  - Bronchitis [Not Recovered/Not Resolved]
  - Injection site pain [Not Recovered/Not Resolved]
  - Wrong technique in drug usage process [Not Recovered/Not Resolved]
  - Injection site mass [Not Recovered/Not Resolved]
